FAERS Safety Report 24154705 (Version 1)
Quarter: 2024Q3

REPORT INFORMATION
  Report Type: Report from Study
  Country: US (occurrence: US)
  Receive Date: 20240731
  Receipt Date: 20240731
  Transmission Date: 20241017
  Serious: Yes (Hospitalization)
  Sender: JOHNSON AND JOHNSON
  Company Number: US-JNJFOC-20240775780

PATIENT
  Sex: Female

DRUGS (2)
  1. SPRAVATO [Suspect]
     Active Substance: ESKETAMINE
     Indication: Depression
     Dosage: ^^56 MG, 8 TOTAL DOSES^^
     Dates: start: 20220330, end: 20220425
  2. SPRAVATO [Suspect]
     Active Substance: ESKETAMINE
     Dosage: ^^84MG, 68 TOTAL DOSES^^
     Dates: start: 20220504, end: 20240227

REACTIONS (1)
  - Illness [Unknown]
